FAERS Safety Report 5216592-9 (Version None)
Quarter: 2007Q1

REPORT INFORMATION
  Report Type: 
  Country: None (occurrence: None)
  Receive Date: 20070118
  Receipt Date: 20070110
  Transmission Date: 20070707
  Serious: Yes (Hospitalization)
  Sender: FDA-Public Use
  Company Number: CAP07000009

PATIENT
  Age: 83 Year
  Sex: Male
  Weight: 62.6 kg

DRUGS (6)
  1. ACTONEL [Suspect]
     Indication: OSTEOPOROSIS
     Dosage: 35 MG ONCE WEEKLY, ORAL
     Route: 048
     Dates: start: 20060401
  2. METOPROLOL TARTRATE [Concomitant]
  3. COLCHICINE (COLCHICINE) [Concomitant]
  4. SIMVASTATIN [Concomitant]
  5. ASAPHEN (ACETYLSALICYLIC ACID) [Concomitant]
  6. CALCIUM WITH VITAMIN D (COLECALCIFEROL, CALCIUM CARBONATE) [Concomitant]

REACTIONS (8)
  - EATING DISORDER [None]
  - GOUT [None]
  - INSOMNIA [None]
  - MYOCARDIAL INFARCTION [None]
  - OEDEMA PERIPHERAL [None]
  - WEIGHT DECREASED [None]
  - WOUND [None]
  - WRONG TECHNIQUE IN DRUG USAGE PROCESS [None]
